FAERS Safety Report 16199184 (Version 1)
Quarter: 2019Q2

REPORT INFORMATION
  Report Type: Report from Study
  Country: CA (occurrence: CA)
  Receive Date: 20190415
  Receipt Date: 20190415
  Transmission Date: 20190711
  Serious: Yes (Other)
  Sender: FDA-Public Use
  Company Number: CA-JNJFOC-20190412530

PATIENT
  Sex: Female

DRUGS (1)
  1. TREMFYA [Suspect]
     Active Substance: GUSELKUMAB
     Indication: PSORIASIS
     Dosage: STRENGTH = 100 MG
     Route: 058
     Dates: start: 20190222

REACTIONS (6)
  - Headache [Unknown]
  - Off label use [Unknown]
  - Chest discomfort [Unknown]
  - Product use issue [Unknown]
  - Sinus congestion [Unknown]
  - Arthralgia [Unknown]
